FAERS Safety Report 11335427 (Version 1)
Quarter: 2015Q3

REPORT INFORMATION
  Report Type: Spontaneous
  Country: US (occurrence: US)
  Receive Date: 20150804
  Receipt Date: 20150804
  Transmission Date: 20151125
  Serious: Yes (Other)
  Sender: FDA-Public Use
  Company Number: US-BEH-2015052923

PATIENT
  Age: 59 Year
  Sex: Female

DRUGS (1)
  1. IVIG [Suspect]
     Active Substance: HUMAN IMMUNOGLOBULIN G
     Indication: PRODUCT USED FOR UNKNOWN INDICATION
     Dosage: TREATMENT WITH UNKNOWN IVIG SINCE 1992

REACTIONS (3)
  - Epilepsy [Unknown]
  - Pneumonia [Unknown]
  - Sinus operation [Unknown]

NARRATIVE: CASE EVENT DATE: 1992
